FAERS Safety Report 24641379 (Version 1)
Quarter: 2024Q4

REPORT INFORMATION
  Report Type: Spontaneous
  Country: US (occurrence: None)
  Receive Date: 20241119
  Receipt Date: 20241119
  Transmission Date: 20250115
  Serious: Yes (Other)
  Sender: Public
  Company Number: None

PATIENT
  Age: 60 Year
  Sex: Female

DRUGS (1)
  1. REBIF [Suspect]
     Active Substance: INTERFERON BETA-1A
     Indication: Multiple sclerosis
     Dosage: 8.8MCG, 22MCG, THEN 44MCG : WEEKS 1-2, WEEKS 3-4?
     Dates: start: 20241024

REACTIONS (5)
  - Asthenia [None]
  - Fatigue [None]
  - Gait inability [None]
  - Migraine [None]
  - Urine output decreased [None]

NARRATIVE: CASE EVENT DATE: 20241119
